FAERS Safety Report 6937301-9 (Version None)
Quarter: 2010Q3

REPORT INFORMATION
  Report Type: 
  Country: None (occurrence: None)
  Receive Date: 20100823
  Receipt Date: 20100820
  Transmission Date: 20110219
  Serious: Yes (Other)
  Sender: FDA-Public Use
  Company Number: D0068093A

PATIENT
  Age: 38 Year
  Sex: Female

DRUGS (1)
  1. SALBUHEXAL [Suspect]
     Route: 055

REACTIONS (6)
  - ARRHYTHMIA [None]
  - CHEST DISCOMFORT [None]
  - DIZZINESS [None]
  - HEADACHE [None]
  - HYPERGLYCAEMIA [None]
  - HYPOKALAEMIA [None]
